FAERS Safety Report 24770142 (Version 1)
Quarter: 2024Q4

REPORT INFORMATION
  Report Type: Spontaneous
  Country: GB (occurrence: GB)
  Receive Date: 20241224
  Receipt Date: 20241224
  Transmission Date: 20250115
  Serious: Yes (Other)
  Sender: AUROBINDO
  Company Number: GB-MHRA-TPP49826191C6118765YC1733746585599

PATIENT
  Age: 61 Year
  Sex: Female
  Weight: 89 kg

DRUGS (5)
  1. AMLODIPINE BESYLATE [Suspect]
     Active Substance: AMLODIPINE BESYLATE
     Indication: Ill-defined disorder
     Dosage: 5 MILLIGRAM, ONCE A DAY
     Route: 065
     Dates: start: 20241115
  2. ESTRIOL [Concomitant]
     Active Substance: ESTRIOL
     Indication: Ill-defined disorder
     Dosage: UNK UNK, ONCE A DAY (APPLY AT NIGHT)
     Route: 065
     Dates: start: 20241001, end: 20241031
  3. LERCANIDIPINE HYDROCHLORIDE [Concomitant]
     Active Substance: LERCANIDIPINE HYDROCHLORIDE
     Indication: Ill-defined disorder
     Dosage: UNK UNK, DAILY (TAKE ONE DAILY INSTEAD OF AMLODIPINE )
     Route: 065
     Dates: start: 20241126
  4. OMEPRAZOLE [Concomitant]
     Active Substance: OMEPRAZOLE
     Indication: Ill-defined disorder
     Dosage: UNK UNK, ONCE A DAY (TAKE ONE TABLET DAILY WHEN REQUIRED FOR REFLUX )
     Route: 065
     Dates: start: 20240719
  5. ACETAMINOPHEN\CODEINE PHOSPHATE [Concomitant]
     Active Substance: ACETAMINOPHEN\CODEINE PHOSPHATE
     Indication: Ill-defined disorder
     Dosage: UNK (TAKE ONE OR TWO TABLETS 3-4 TIMES A DAY WHEN RE...)
     Route: 065
     Dates: start: 20240719

REACTIONS (1)
  - Joint swelling [Recovered/Resolved]
